FAERS Safety Report 4533127-4 (Version None)
Quarter: 2004Q4

REPORT INFORMATION
  Report Type: 
  Country: None (occurrence: None)
  Receive Date: 20041206
  Receipt Date: 20041020
  Transmission Date: 20050328
  Serious: No
  Sender: FDA-Public Use
  Company Number: USA041081898

PATIENT
  Age: 49 Year
  Sex: Female
  Weight: 70 kg

DRUGS (7)
  1. CYMBALTA [Suspect]
     Indication: DEPRESSION
     Dosage: 30 MG DAY
     Dates: start: 20040924, end: 20041020
  2. LEVORPHANOL TARTRATE [Concomitant]
  3. GABITRIL [Concomitant]
  4. LORTAB [Concomitant]
  5. TRAZADONE (TRAZODONE) [Concomitant]
  6. LEXAPRO [Concomitant]
  7. ATENOLOL [Concomitant]

REACTIONS (2)
  - AGITATION [None]
  - SUICIDAL IDEATION [None]
